FAERS Safety Report 14483544 (Version 7)
Quarter: 2018Q2

REPORT INFORMATION
  Report Type: Report from Study
  Country: GB (occurrence: GB)
  Receive Date: 20180204
  Receipt Date: 20180529
  Transmission Date: 20180711
  Serious: Yes (Hospitalization)
  Sender: FDA-Public Use
  Company Number: GB-BAXTER-2018BAX003819

PATIENT
  Age: 60 Year
  Sex: Female
  Weight: 52.3 kg

DRUGS (24)
  1. ETOPOSIDE. [Suspect]
     Active Substance: ETOPOSIDE
     Indication: PLASMA CELL MYELOMA
     Dosage: 60 MG, QD, DOSAGE FORM: UNKNOWN
     Route: 042
     Dates: start: 20171108, end: 20171111
  2. NINLARO [Suspect]
     Active Substance: IXAZOMIB CITRATE
     Indication: PLASMA CELL MYELOMA
     Dosage: UNK
     Route: 048
     Dates: start: 20170320, end: 20170724
  3. NINLARO [Suspect]
     Active Substance: IXAZOMIB CITRATE
     Dosage: UNK
     Route: 048
     Dates: start: 20170706, end: 20170724
  4. NINLARO [Suspect]
     Active Substance: IXAZOMIB CITRATE
     Route: 058
  5. REVLIMID [Suspect]
     Active Substance: LENALIDOMIDE
     Indication: PLASMA CELL MYELOMA
     Dosage: 15 MG, DOSAGE FORM: UNKNOWN
     Route: 048
     Dates: start: 20170511, end: 20171019
  6. METHOTREXATE. [Concomitant]
     Active Substance: METHOTREXATE
     Indication: PRODUCT USED FOR UNKNOWN INDICATION
     Route: 065
  7. VELCADE [Concomitant]
     Active Substance: BORTEZOMIB
     Indication: PLASMA CELL MYELOMA
     Dosage: 2 MG, DOSAGE FORM: LYOPHILIZED POWDER
     Route: 058
     Dates: start: 20171125
  8. DECADRON [Suspect]
     Active Substance: DEXAMETHASONE
     Indication: PLASMA CELL MYELOMA
     Dosage: 40 MG, QD, DOSAGE FORM: UNKNOWN
     Route: 048
     Dates: start: 20171108, end: 20171111
  9. CYTARABINE. [Concomitant]
     Active Substance: CYTARABINE
     Indication: PLASMA CELL MYELOMA
     Dosage: 50 MG, Q2WEEKS, DOSAGE FORM: UNKNOWN
     Route: 042
     Dates: start: 20171115, end: 20171221
  10. DECADRON [Suspect]
     Active Substance: DEXAMETHASONE
     Dosage: 20 MG, DOSAGE FORM: UNKNOWN
     Route: 048
     Dates: start: 20170413, end: 2017
  11. PLATINOL [Suspect]
     Active Substance: CISPLATIN
     Indication: PLASMA CELL MYELOMA
     Dosage: 15 MG, QD, DOSAGE FORM: UNSPECIFIED
     Route: 041
     Dates: start: 20171108, end: 20171111
  12. ASA [Concomitant]
     Active Substance: ASPIRIN
     Indication: THROMBOSIS PROPHYLAXIS
     Dosage: UNK, DOSAGE FORM: UNSPECIFIED
     Route: 065
  13. HYDROCORTISONE. [Concomitant]
     Active Substance: HYDROCORTISONE
     Indication: PLASMA CELL MYELOMA
     Dosage: 25 MG, Q2WEEKS, DOSAGE FORM: UNSPECIFIED
     Route: 065
     Dates: start: 20171115, end: 20171221
  14. ZOLEDRONIC ACID [Concomitant]
     Active Substance: ZOLEDRONIC ACID
     Indication: PRODUCT USED FOR UNKNOWN INDICATION
     Dosage: DOSAGE FORM: UNKNOWN
     Route: 065
  15. FILGRASTIM [Concomitant]
     Active Substance: FILGRASTIM
     Indication: PRODUCT USED FOR UNKNOWN INDICATION
     Dosage: DOSAGE FORM: UNKNOWN
     Route: 065
  16. DECADRON [Suspect]
     Active Substance: DEXAMETHASONE
     Dosage: 15 MG, DOSAGE FORM: UNKNOWN
     Route: 048
     Dates: start: 20170320, end: 20171019
  17. DECADRON [Suspect]
     Active Substance: DEXAMETHASONE
     Dosage: 40 MG, 1/WEEK
     Route: 048
     Dates: start: 20170320, end: 2017
  18. CYCLOPHOSPHAMIDE INJECTION 1G [Suspect]
     Active Substance: CYCLOPHOSPHAMIDE
     Indication: PLASMA CELL MYELOMA
     Dosage: 600 MG, QD
     Route: 041
     Dates: start: 20171108, end: 20171111
  19. ADRIAMYCIN [Suspect]
     Active Substance: DOXORUBICIN HYDROCHLORIDE
     Indication: PLASMA CELL MYELOMA
     Dosage: 15 MG, QD
     Route: 042
     Dates: start: 20171108, end: 20171111
  20. REVLIMID [Suspect]
     Active Substance: LENALIDOMIDE
     Dosage: 25 MG, DOSAGE FORM: UNKNOWN
     Route: 048
     Dates: start: 20170320, end: 2017
  21. TINZAPARIN [Concomitant]
     Active Substance: TINZAPARIN
     Indication: THROMBOSIS PROPHYLAXIS
     Dosage: UNK
     Route: 065
  22. METHOTREXATE. [Concomitant]
     Active Substance: METHOTREXATE
     Indication: PLASMA CELL MYELOMA
     Dosage: 12.5 MG, Q2WEEKS
     Route: 041
     Dates: start: 20171115, end: 20171221
  23. HEPARIN [Concomitant]
     Active Substance: HEPARIN SODIUM
     Indication: THROMBOSIS PROPHYLAXIS
     Dosage: DOSAGE FORM: UNKNOWN
     Route: 065
  24. HYDROCORTISONE. [Concomitant]
     Active Substance: HYDROCORTISONE
     Route: 065

REACTIONS (2)
  - Diarrhoea haemorrhagic [Recovered/Resolved]
  - Febrile neutropenia [Recovered/Resolved]

NARRATIVE: CASE EVENT DATE: 20170728
